FAERS Safety Report 23657065 (Version 1)
Quarter: 2024Q1

REPORT INFORMATION
  Report Type: Spontaneous
  Country: US (occurrence: US)
  Receive Date: 20240321
  Receipt Date: 20240321
  Transmission Date: 20240410
  Serious: Yes (Other)
  Sender: FDA-Public Use
  Company Number: US-BAYER-2024A036603

PATIENT
  Sex: Female

DRUGS (2)
  1. MIRENA [Suspect]
     Active Substance: LEVONORGESTREL
     Indication: Contraception
     Dosage: 20?G/DAY
     Route: 015
     Dates: start: 20190819, end: 20221111
  2. MIRENA [Suspect]
     Active Substance: LEVONORGESTREL
     Indication: Heavy menstrual bleeding

REACTIONS (11)
  - Sjogren^s syndrome [Recovered/Resolved]
  - Anxiety [Recovered/Resolved]
  - Depression [Recovered/Resolved]
  - Personality change [Recovered/Resolved]
  - Dyspareunia [Recovered/Resolved]
  - Rash papular [Recovered/Resolved]
  - Contusion [Recovered/Resolved]
  - Crying [Recovered/Resolved]
  - Ovarian cyst [Recovered/Resolved]
  - Psychotic disorder [Recovered/Resolved]
  - Hormone level abnormal [Recovered/Resolved]
